FAERS Safety Report 8075696-6 (Version None)
Quarter: 2012Q1

REPORT INFORMATION
  Report Type: 
  Country: None (occurrence: None)
  Receive Date: 20120127
  Receipt Date: 20120120
  Transmission Date: 20120608
  Serious: Yes (Death, Hospitalization, Other)
  Sender: FDA-Public Use
  Company Number: US-ASTELLAS-2012US000418

PATIENT
  Sex: Female

DRUGS (1)
  1. TARCEVA [Suspect]
     Indication: LUNG CANCER METASTATIC
     Dosage: UNK
     Route: 048

REACTIONS (10)
  - RESPIRATORY FAILURE [None]
  - PULMONARY EMBOLISM [None]
  - METASTASES TO CENTRAL NERVOUS SYSTEM [None]
  - PYREXIA [None]
  - OXYGEN SATURATION DECREASED [None]
  - PNEUMONIA [None]
  - COUGH [None]
  - HYPOXIA [None]
  - METASTASES TO LUNG [None]
  - RADIATION PNEUMONITIS [None]
